FAERS Safety Report 15506015 (Version 3)
Quarter: 2018Q4

REPORT INFORMATION
  Report Type: Spontaneous
  Country: IT (occurrence: IT)
  Receive Date: 20181016
  Receipt Date: 20181109
  Transmission Date: 20190205
  Serious: Yes (Hospitalization)
  Sender: FDA-Public Use
  Company Number: IT-BIOGEN-2018BI00644378

PATIENT
  Age: 40 Year
  Sex: Male

DRUGS (1)
  1. TECFIDERA [Suspect]
     Active Substance: DIMETHYL FUMARATE
     Indication: MULTIPLE SCLEROSIS
     Route: 065

REACTIONS (2)
  - Listeriosis [Unknown]
  - Multiple sclerosis relapse [Unknown]
